FAERS Safety Report 14683512 (Version 1)
Quarter: 2018Q1

REPORT INFORMATION
  Report Type: Spontaneous
  Country: US (occurrence: US)
  Receive Date: 20180327
  Receipt Date: 20180327
  Transmission Date: 20180509
  Serious: No
  Sender: FDA-Public Use
  Company Number: US-SHIRE-US201808215

PATIENT

DRUGS (1)
  1. XIIDRA [Suspect]
     Active Substance: LIFITEGRAST
     Indication: DRY EYE
     Dosage: 1 GTT, 2X/DAY:BID
     Route: 047

REACTIONS (9)
  - Dry eye [Unknown]
  - Ocular hyperaemia [Unknown]
  - Product use complaint [Unknown]
  - Glassy eyes [Unknown]
  - Abdominal discomfort [Unknown]
  - Eye pain [Unknown]
  - Headache [Unknown]
  - Product container issue [Unknown]
  - Inappropriate schedule of drug administration [Unknown]
